FAERS Safety Report 18660666 (Version 2)
Quarter: 2021Q1

REPORT INFORMATION
  Report Type: Spontaneous
  Country: US (occurrence: US)
  Receive Date: 20201223
  Receipt Date: 20210103
  Transmission Date: 20210419
  Serious: No
  Sender: FDA-Public Use
  Company Number: US-AMGEN-USASP2020206931

PATIENT
  Age: 63 Year
  Sex: Female

DRUGS (6)
  1. OTEZLA [Suspect]
     Active Substance: APREMILAST
     Indication: PSORIASIS
     Dosage: 30 MILLIGRAM, BID
     Route: 048
     Dates: start: 20201211
  2. DICLOFENAC [Concomitant]
     Active Substance: DICLOFENAC
     Dosage: UNK
  3. AZITHROMYCIN ANHYDROUS. [Concomitant]
     Active Substance: AZITHROMYCIN ANHYDROUS
     Dosage: UNK
  4. HYDROCODONE [Concomitant]
     Active Substance: HYDROCODONE
     Dosage: 1 DOSAGE FORM, BID (10/325)
  5. METHYLPREDNISOLONE. [Concomitant]
     Active Substance: METHYLPREDNISOLONE
     Dosage: UNK
  6. BENZONATATE. [Concomitant]
     Active Substance: BENZONATATE
     Dosage: UNK

REACTIONS (1)
  - Headache [Not Recovered/Not Resolved]

NARRATIVE: CASE EVENT DATE: 20201217
